FAERS Safety Report 21582290 (Version 1)
Quarter: 2022Q4

REPORT INFORMATION
  Report Type: Spontaneous
  Country: BE (occurrence: BE)
  Receive Date: 20221111
  Receipt Date: 20221111
  Transmission Date: 20230113
  Serious: Yes (Other)
  Sender: FDA-Public Use
  Company Number: BE-009507513-2211BEL001651

PATIENT
  Sex: Male

DRUGS (3)
  1. TEMOZOLOMIDE [Suspect]
     Active Substance: TEMOZOLOMIDE
     Indication: Glioblastoma
     Dosage: CONCOMITANT WITH RADIOTHERAPY, THEN FOLLOWED BY 8 COURSES AS MONOTHERAPY
     Route: 048
     Dates: start: 201711
  2. TEMOZOLOMIDE [Suspect]
     Active Substance: TEMOZOLOMIDE
     Dosage: UNK
     Route: 048
     Dates: start: 201903, end: 202002
  3. TEMOZOLOMIDE [Suspect]
     Active Substance: TEMOZOLOMIDE
     Dosage: 2 COURSES
     Route: 048
     Dates: start: 202206

REACTIONS (3)
  - Malignant neoplasm progression [Unknown]
  - Malignant neoplasm progression [Unknown]
  - Extra dose administered [Unknown]

NARRATIVE: CASE EVENT DATE: 20220801
